FAERS Safety Report 9192327 (Version 2)
Quarter: 2013Q2

REPORT INFORMATION
  Report Type: Report from Study
  Country: CA (occurrence: CA)
  Receive Date: 20130327
  Receipt Date: 20130429
  Transmission Date: 20140414
  Serious: Yes (Other)
  Sender: FDA-Public Use
  Company Number: CA-JNJFOC-20130311582

PATIENT
  Age: 39 Year
  Sex: Female
  Weight: 65.4 kg

DRUGS (8)
  1. REMICADE [Suspect]
     Indication: CROHN^S DISEASE
     Route: 042
     Dates: start: 20120329
  2. CIPRALEX [Concomitant]
     Route: 065
  3. LORAZEPAM [Concomitant]
     Route: 065
  4. ZOPICLONE [Concomitant]
     Route: 065
  5. VALTREX [Concomitant]
     Route: 065
  6. WELLBUTRIN [Concomitant]
     Route: 065
  7. VENTOLIN [Concomitant]
     Route: 065
  8. NASONEX [Concomitant]
     Route: 065

REACTIONS (4)
  - Cervix carcinoma [Unknown]
  - Streptococcal infection [Recovered/Resolved]
  - Lower respiratory tract infection [Recovered/Resolved]
  - Sinusitis [Recovered/Resolved]
